FAERS Safety Report 19133526 (Version 1)
Quarter: 2021Q2

REPORT INFORMATION
  Report Type: Spontaneous
  Country: US (occurrence: US)
  Receive Date: 20210413
  Receipt Date: 20210413
  Transmission Date: 20210717
  Serious: Yes (Hospitalization)
  Sender: FDA-Public Use
  Company Number: None

PATIENT
  Sex: Female

DRUGS (22)
  1. XELJANZ XR [Suspect]
     Active Substance: TOFACITINIB CITRATE
     Indication: PSORIATIC ARTHROPATHY
     Route: 048
     Dates: start: 20200815
  2. AMOX/K CLAV [Concomitant]
     Active Substance: AMOXICILLIN\CLAVULANATE POTASSIUM
  3. BROM/PSE/DM [Concomitant]
  4. FISH OIL [Concomitant]
     Active Substance: FISH OIL
  5. VITAMIN D3 [Concomitant]
     Active Substance: CHOLECALCIFEROL
  6. BACLOFEN. [Concomitant]
     Active Substance: BACLOFEN
  7. COENZYME Q10 [Concomitant]
     Active Substance: DIETARY SUPPLEMENT\UBIDECARENONE
  8. LOSARTAN POT [Concomitant]
     Active Substance: LOSARTAN POTASSIUM
  9. DOXYCYC MONO [Concomitant]
     Active Substance: DOXYCYCLINE
  10. PREDNISONE. [Concomitant]
     Active Substance: PREDNISONE
  11. METFORMIN [Concomitant]
     Active Substance: METFORMIN HYDROCHLORIDE
  12. CHLORTHALID [Concomitant]
     Active Substance: CHLORTHALIDONE
  13. HUMULIN R [Concomitant]
     Active Substance: INSULIN HUMAN
  14. ASPIRIN LOW EC [Concomitant]
  15. MAGNESIUM?OX [Concomitant]
  16. LOSARTAN/HCT [Concomitant]
     Active Substance: HYDROCHLOROTHIAZIDE\LOSARTAN POTASSIUM
  17. PROMETH/COD [Concomitant]
  18. SIMVASTATIN. [Concomitant]
     Active Substance: SIMVASTATIN
  19. TRIAMCINOLON CRE [Concomitant]
  20. FOLIC ACID. [Concomitant]
     Active Substance: FOLIC ACID
  21. LEVOFLOXACIN. [Concomitant]
     Active Substance: LEVOFLOXACIN
  22. MECLIZINE [Concomitant]
     Active Substance: MECLIZINE HYDROCHLORIDE

REACTIONS (2)
  - Therapy interrupted [None]
  - Hospitalisation [None]
